FAERS Safety Report 8352416-9 (Version None)
Quarter: 2012Q2

REPORT INFORMATION
  Report Type: 
  Country: None (occurrence: None)
  Receive Date: 20120511
  Receipt Date: 20120504
  Transmission Date: 20120825
  Serious: Yes (Other)
  Sender: FDA-Public Use
  Company Number: PHEH2012US009557

PATIENT
  Sex: Female

DRUGS (11)
  1. ALLOPURINOL [Concomitant]
  2. LIPITOR [Concomitant]
  3. WARFARIN SODIUM [Concomitant]
  4. TASIGNA [Suspect]
     Indication: CHRONIC MYELOID LEUKAEMIA
     Dosage: 300 MG, BID
     Route: 048
     Dates: start: 20120327
  5. LEVOTHYROXINE SODIUM [Concomitant]
  6. ATENOLOL [Concomitant]
  7. PANTOPRAZOLE [Concomitant]
  8. DIOVAN [Concomitant]
  9. NIASPAN [Concomitant]
  10. CALCIUM CARBONATE [Concomitant]
  11. CYANOCOBALAMIN [Concomitant]

REACTIONS (5)
  - CARDIAC FLUTTER [None]
  - CHEST PAIN [None]
  - HEART RATE INCREASED [None]
  - FATIGUE [None]
  - ATRIAL FIBRILLATION [None]
